FAERS Safety Report 25119076 (Version 1)
Quarter: 2025Q1

REPORT INFORMATION
  Report Type: Spontaneous
  Country: US (occurrence: US)
  Receive Date: 20250325
  Receipt Date: 20250325
  Transmission Date: 20250408
  Serious: Yes (Hospitalization)
  Sender: JOHNSON AND JOHNSON
  Company Number: US-JNJFOC-20250315344

PATIENT
  Age: 75 Year
  Sex: Male

DRUGS (11)
  1. DARZALEX [Suspect]
     Active Substance: DARATUMUMAB
     Indication: Product used for unknown indication
  2. NOVOLOG [Concomitant]
     Active Substance: INSULIN ASPART
  3. TYLENOL [Concomitant]
     Active Substance: ACETAMINOPHEN
  4. SOLU-MEDROL [Concomitant]
     Active Substance: METHYLPREDNISOLONE SODIUM SUCCINATE
  5. PEPCID AC [Concomitant]
     Active Substance: FAMOTIDINE
  6. ACRIVASTINE [Concomitant]
     Active Substance: ACRIVASTINE
  7. SINGULAIR [Concomitant]
     Active Substance: MONTELUKAST SODIUM
  8. DECARON [DEXAMETHASONE] [Concomitant]
  9. PROCHLORPERAZINE EDISYLATE [Concomitant]
     Active Substance: PROCHLORPERAZINE EDISYLATE
  10. PROCHLORPERAZINE EDISYLATE [Concomitant]
     Active Substance: PROCHLORPERAZINE EDISYLATE
  11. ZOVIRAX [Concomitant]
     Active Substance: ACYCLOVIR

REACTIONS (6)
  - Infusion related reaction [Unknown]
  - Oropharyngeal pain [Recovering/Resolving]
  - Somnolence [Unknown]
  - Throat irritation [Unknown]
  - Restlessness [Unknown]
  - Headache [Unknown]

NARRATIVE: CASE EVENT DATE: 20250120
